FAERS Safety Report 5432542-4 (Version None)
Quarter: 2007Q3

REPORT INFORMATION
  Report Type: 
  Country: None (occurrence: None)
  Receive Date: 20070831
  Receipt Date: 20070822
  Transmission Date: 20080115
  Serious: Yes (Other)
  Sender: FDA-Public Use
  Company Number: PHEH2007US11560

PATIENT

DRUGS (2)
  1. TEKTURNA [Suspect]
     Dosage: 150 MG, QD
     Route: 048
  2. TEKTURNA [Suspect]
     Dosage: 300 MG, QD
     Route: 048

REACTIONS (2)
  - BLOOD CREATININE INCREASED [None]
  - RENAL FAILURE ACUTE [None]
